FAERS Safety Report 9305036 (Version 1)
Quarter: 2013Q2

REPORT INFORMATION
  Report Type: Spontaneous
  Country: FR (occurrence: FR)
  Receive Date: 20130523
  Receipt Date: 20130523
  Transmission Date: 20140414
  Serious: Yes (Hospitalization)
  Sender: FDA-Public Use
  Company Number: FR-MERCK-1305FRA010649

PATIENT
  Age: 76 Year
  Sex: Male

DRUGS (1)
  1. JANUMET [Suspect]
     Dosage: 2 DF, QD
     Route: 048

REACTIONS (2)
  - Thrombocytopenia [Unknown]
  - Gamma-glutamyltransferase increased [Unknown]
